FAERS Safety Report 17930418 (Version 4)
Quarter: 2020Q3

REPORT INFORMATION
  Report Type: Report from Study
  Country: CA (occurrence: CA)
  Receive Date: 20200623
  Receipt Date: 20200722
  Transmission Date: 20201103
  Serious: Yes (Other)
  Sender: FDA-Public Use
  Company Number: CA-JNJFOC-20200500361

PATIENT
  Age: 30 Year
  Sex: Female
  Weight: 78.5 kg

DRUGS (2)
  1. REMICADE [Suspect]
     Active Substance: INFLIXIMAB
     Route: 042
     Dates: start: 20160225
  2. REMICADE [Suspect]
     Active Substance: INFLIXIMAB
     Indication: COLITIS ULCERATIVE
     Route: 042
     Dates: start: 20050225

REACTIONS (6)
  - Clostridium difficile infection [Not Recovered/Not Resolved]
  - Hidradenitis [Not Recovered/Not Resolved]
  - Rash [Unknown]
  - Infection [Recovering/Resolving]
  - Colitis ulcerative [Unknown]
  - Drug level decreased [Unknown]

NARRATIVE: CASE EVENT DATE: 20200429
